FAERS Safety Report 6772247-0 (Version None)
Quarter: 2010Q2

REPORT INFORMATION
  Report Type: 
  Country: None (occurrence: None)
  Receive Date: 20100616
  Receipt Date: 20090527
  Transmission Date: 20101027
  Serious: No
  Sender: FDA-Public Use
  Company Number: US-ASTRAZENECA-2009UW13577

PATIENT
  Age: 70 Year
  Sex: Male

DRUGS (15)
  1. PULMICORT FLEXHALER [Suspect]
     Indication: ASTHMA
     Route: 055
  2. NAMENDA [Concomitant]
  3. FLOMAX [Concomitant]
  4. AVODART [Concomitant]
  5. DETROL [Concomitant]
  6. GLIMEPIRIDE [Concomitant]
  7. METFORMIN [Concomitant]
  8. ACTOS [Concomitant]
  9. LIPITOR [Concomitant]
  10. SYNTHROID [Concomitant]
  11. ATACAND [Concomitant]
  12. GABAPENTIN [Concomitant]
  13. HYDROXYZINE [Concomitant]
  14. ASPIRIN [Concomitant]
  15. VENTOLIN HFA [Concomitant]

REACTIONS (3)
  - ASTHENIA [None]
  - INCORRECT DOSE ADMINISTERED [None]
  - WEIGHT INCREASED [None]
